FAERS Safety Report 9513867 (Version 7)
Quarter: 2014Q1

REPORT INFORMATION
  Report Type: Spontaneous
  Country: US (occurrence: US)
  Receive Date: 20130910
  Receipt Date: 20140120
  Transmission Date: 20141002
  Serious: Yes (Hospitalization, Other)
  Sender: FDA-Public Use
  Company Number: US-009507513-1201USA00399

PATIENT
  Sex: Female
  Weight: 87.98 kg

DRUGS (7)
  1. FOSAMAX [Suspect]
     Dosage: 70 MG, UNK
     Route: 048
  2. ALENDRONATE SODIUM [Suspect]
     Dosage: 70 MG, UNK
     Route: 048
  3. BONIVA [Concomitant]
     Indication: OSTEOPOROSIS
     Dosage: UNK
     Dates: start: 2006, end: 2007
  4. METHOTREXATE [Concomitant]
     Indication: RHEUMATOID ARTHRITIS
     Dosage: UNK
     Dates: start: 1995
  5. PREDNISONE [Concomitant]
     Indication: RHEUMATOID ARTHRITIS
     Dosage: UNK
     Dates: start: 1995
  6. CALCIUM (UNSPECIFIED) [Concomitant]
     Indication: OSTEOPOROSIS
     Dosage: 1000-1500MG DAILY
     Dates: start: 200003
  7. VITAMIN D (UNSPECIFIED) [Concomitant]
     Indication: OSTEOPOROSIS
     Dosage: 400 IU, QD
     Dates: start: 200003

REACTIONS (21)
  - Intramedullary rod insertion [Unknown]
  - Haemorrhage [Unknown]
  - Anaemia postoperative [Unknown]
  - Basal cell carcinoma [Unknown]
  - Squamous cell carcinoma of skin [Unknown]
  - Femur fracture [Unknown]
  - Goitre [Unknown]
  - Hypertension [Unknown]
  - Arthritis [Unknown]
  - Hypotension [Unknown]
  - Osteoarthritis [Unknown]
  - Appendicectomy [Unknown]
  - Spinal osteoarthritis [Unknown]
  - Hypothyroidism [Unknown]
  - Osteoarthritis [Unknown]
  - Hyperglycaemia [Unknown]
  - Thrombocytopenia [Unknown]
  - Pollakiuria [Recovered/Resolved]
  - Nausea [Unknown]
  - Constipation [Not Recovered/Not Resolved]
  - Hypocalcaemia [Unknown]
